FAERS Safety Report 17519711 (Version 1)
Quarter: 2020Q1

REPORT INFORMATION
  Report Type: Spontaneous
  Country: US (occurrence: US)
  Receive Date: 20200228
  Receipt Date: 20200228
  Transmission Date: 20200409
  Serious: No
  Sender: FDA-Public Use
  Company Number: None

PATIENT
  Sex: Female

DRUGS (1)
  1. HYQVIA [Suspect]
     Active Substance: HUMAN IMMUNOGLOBULIN G\HYALURONIDASE RECOMBINANT HUMAN
     Indication: IMMUNODEFICIENCY COMMON VARIABLE
     Dosage: ?          OTHER STRENGTH:30GM/300ML;OTHER FREQUENCY:EVERY 4 WEEKS;OTHER ROUTE:SUBQ INFUSION?
     Dates: start: 20180622

REACTIONS (4)
  - Infusion site erythema [None]
  - Malaise [None]
  - Pyrexia [None]
  - Infusion site rash [None]
